FAERS Safety Report 15738551 (Version 3)
Quarter: 2020Q1

REPORT INFORMATION
  Report Type: Spontaneous
  Country: US (occurrence: US)
  Receive Date: 20181219
  Receipt Date: 20200115
  Transmission Date: 20200409
  Serious: No
  Sender: FDA-Public Use
  Company Number: US-PFIZER INC-2016338589

PATIENT
  Age: 57 Year
  Sex: Female
  Weight: 104 kg

DRUGS (1)
  1. XELJANZ [Suspect]
     Active Substance: TOFACITINIB CITRATE
     Indication: RHEUMATOID ARTHRITIS
     Dosage: 5 MG, TWICE DAILY (QUANTITY=60/DAYS SUPPLY=30)
     Route: 048
     Dates: start: 201603

REACTIONS (4)
  - Abdominal discomfort [Unknown]
  - Contusion [Unknown]
  - Condition aggravated [Unknown]
  - Sinusitis [Unknown]
